FAERS Safety Report 6203967-4 (Version None)
Quarter: 2009Q2

REPORT INFORMATION
  Report Type: 
  Country: None (occurrence: None)
  Receive Date: 20090527
  Receipt Date: 20090519
  Transmission Date: 20091009
  Serious: Yes (Hospitalization)
  Sender: FDA-Public Use
  Company Number: B0571893A

PATIENT
  Sex: Female

DRUGS (8)
  1. LAMICTAL [Suspect]
     Indication: TEMPORAL LOBE EPILEPSY
     Route: 048
     Dates: start: 20090327, end: 20090413
  2. TEGRETOL [Concomitant]
     Indication: TEMPORAL LOBE EPILEPSY
     Dosage: 1000MG PER DAY
     Route: 048
     Dates: end: 20090401
  3. ALEVIATIN [Concomitant]
     Indication: TEMPORAL LOBE EPILEPSY
     Route: 048
     Dates: end: 20090401
  4. EXCEGRAN [Concomitant]
     Indication: TEMPORAL LOBE EPILEPSY
     Route: 048
     Dates: end: 20090401
  5. RIVOTRIL [Concomitant]
     Indication: TEMPORAL LOBE EPILEPSY
     Dosage: 6MG PER DAY
     Route: 048
  6. HYDANTOL [Concomitant]
     Indication: TEMPORAL LOBE EPILEPSY
     Dosage: 75MG PER DAY
     Route: 048
  7. RISPERDAL [Concomitant]
     Indication: HALLUCINATION
     Dosage: 2MG PER DAY
     Route: 048
  8. SERENACE [Concomitant]
     Indication: HALLUCINATION
     Dosage: 15MG PER DAY
     Route: 048

REACTIONS (7)
  - AGGRESSION [None]
  - AGITATION [None]
  - DELUSION [None]
  - EPILEPSY [None]
  - HALLUCINATION [None]
  - INSOMNIA [None]
  - IRRITABILITY [None]
